FAERS Safety Report 10071400 (Version 2)
Quarter: 2015Q1

REPORT INFORMATION
  Report Type: Spontaneous
  Country: IT (occurrence: IT)
  Receive Date: 20140410
  Receipt Date: 20140411
  Transmission Date: 20150720
  Serious: Yes (Hospitalization)
  Sender: FDA-Public Use
  Company Number: IT-WATSON-2014-06840

PATIENT
  Age: 44 Year
  Sex: Female

DRUGS (3)
  1. SERTRALINE [Suspect]
     Active Substance: SERTRALINE HYDROCHLORIDE
     Indication: DRUG ABUSE
     Dosage: 10 DF, TOTAL
     Route: 048
     Dates: start: 20140215, end: 20140215
  2. TOPIRAMATE (UNKNOWN) [Suspect]
     Active Substance: TOPIRAMATE
     Indication: DRUG ABUSE
     Dosage: 10 DF, TOTAL
     Route: 048
     Dates: start: 20140215, end: 20140215
  3. ALPRAZOLAM (UNKNOWN) [Suspect]
     Active Substance: ALPRAZOLAM
     Indication: DRUG ABUSE
     Dosage: 10 DF, TOTAL
     Route: 048
     Dates: start: 20140215, end: 20140215

REACTIONS (4)
  - Confusional state [Unknown]
  - Agitation [Unknown]
  - Drug abuse [Unknown]
  - Vomiting [Unknown]

NARRATIVE: CASE EVENT DATE: 20140215
